FAERS Safety Report 5533683-3 (Version None)
Quarter: 2007Q4

REPORT INFORMATION
  Report Type: 
  Country: None (occurrence: None)
  Receive Date: 20071120
  Receipt Date: 20070926
  Transmission Date: 20080405
  Serious: No
  Sender: FDA-Public Use
  Company Number: WAES 0707USA02663

PATIENT
  Age: 78 Year
  Sex: Female
  Weight: 121.564 kg

DRUGS (1)
  1. JANUVIA [Suspect]
     Indication: DIABETES MELLITUS
     Dosage: 100 MG/DAILY/PO
     Route: 048
     Dates: start: 20061026, end: 20061128

REACTIONS (3)
  - ASTHENIA [None]
  - MALAISE [None]
  - RASH [None]
